FAERS Safety Report 5503831-X (Version None)
Quarter: 2007Q4

REPORT INFORMATION
  Report Type: 
  Country: None (occurrence: None)
  Receive Date: 20071030
  Receipt Date: 20071016
  Transmission Date: 20080405
  Serious: Yes (Hospitalization, Other)
  Sender: FDA-Public Use
  Company Number: 2007US001771

PATIENT
  Age: 64 Year
  Sex: Male
  Weight: 68.9 kg

DRUGS (9)
  1. PROGRAF [Suspect]
     Indication: RENAL TRANSPLANT
     Dosage: 1 MG, BID, ORAL
     Route: 048
     Dates: start: 20020301
  2. TOPROL-XL [Concomitant]
  3. RAPAMUNE [Concomitant]
  4. PREDNISONE [Concomitant]
  5. K-PHOS (POTASSIUM PHOSPHATE MONOBASIC) [Concomitant]
  6. CATAPRES [Concomitant]
  7. MULTI-VIT (VITAMINS NOS) [Concomitant]
  8. FISH OIL (FISH OIL) [Concomitant]
  9. TUMS [Concomitant]

REACTIONS (5)
  - COELIAC DISEASE [None]
  - DIFFUSE LARGE B-CELL LYMPHOMA [None]
  - DRUG INTERACTION [None]
  - LACTOSE INTOLERANCE [None]
  - LOBAR PNEUMONIA [None]
